FAERS Safety Report 7553051-2 (Version None)
Quarter: 2011Q2

REPORT INFORMATION
  Report Type: 
  Country: None (occurrence: None)
  Receive Date: 20110616
  Receipt Date: 20110610
  Transmission Date: 20111010
  Serious: Yes (Hospitalization)
  Sender: FDA-Public Use
  Company Number: US-ALLERGAN-1107869US

PATIENT
  Age: 16 Year
  Sex: Male

DRUGS (1)
  1. ACZONE [Suspect]
     Indication: ACNE
     Dosage: 1 APPLICATION, TWICE DAILY
     Route: 061
     Dates: start: 20091207, end: 20110301

REACTIONS (5)
  - MUSCULAR WEAKNESS [None]
  - PARALYSIS [None]
  - MONOPLEGIA [None]
  - FALL [None]
  - HYPOAESTHESIA [None]
